FAERS Safety Report 14304349 (Version 1)
Quarter: 2017Q4

REPORT INFORMATION
  Report Type: Spontaneous
  Country: US (occurrence: US)
  Receive Date: 20171219
  Receipt Date: 20171219
  Transmission Date: 20180321
  Serious: No
  Sender: FDA-Public Use
  Company Number: US-KVK-TECH, INC-2037420

PATIENT
  Age: 60 Year
  Sex: Female
  Weight: 104.55 kg

DRUGS (19)
  1. TRIAMCINOLONE ACETONIDE. [Concomitant]
     Active Substance: TRIAMCINOLONE ACETONIDE
  2. VITAMIN D [Concomitant]
     Active Substance: CHOLECALCIFEROL
  3. CALCIUM [Concomitant]
     Active Substance: CALCIUM
  4. VITAMIN B12 [Concomitant]
     Active Substance: CYANOCOBALAMIN
  5. POTASSIUM [Concomitant]
     Active Substance: POTASSIUM
  6. MULTI VITE [Concomitant]
  7. MAGNESIUM [Concomitant]
     Active Substance: MAGNESIUM
  8. VITAMIN E [Concomitant]
     Active Substance: .ALPHA.-TOCOPHEROL
  9. RANITIDINE 150 [Concomitant]
     Active Substance: RANITIDINE HYDROCHLORIDE
  10. VITAMIN C [Concomitant]
     Active Substance: ASCORBIC ACID
  11. PHENTERMINE HYDROCHLORIDE. [Suspect]
     Active Substance: PHENTERMINE HYDROCHLORIDE
     Indication: WEIGHT DECREASED
     Route: 048
     Dates: start: 201607, end: 20171127
  12. COLACE [Concomitant]
     Active Substance: DOCUSATE SODIUM
  13. HYDROCORTISONE. [Concomitant]
     Active Substance: HYDROCORTISONE
  14. VITAMIN B COMPLEX [Concomitant]
     Active Substance: CYANOCOBALAMIN\DEXPANTHENOL\NIACINAMIDE\PYRIDOXINE HYDROCHLORIDE\RIBOFLAVIN 5^-PHOSPHATE SODIUM\THIAMINE HYDROCHLORIDE\VITAMIN B COMPLEX
  15. LOSARTAN POTASSIUM. [Concomitant]
     Active Substance: LOSARTAN POTASSIUM
  16. ASPIRIN. [Concomitant]
     Active Substance: ASPIRIN
  17. FISH OIL [Concomitant]
     Active Substance: FISH OIL
  18. IRON [Concomitant]
     Active Substance: IRON
  19. METAXALONE. [Concomitant]
     Active Substance: METAXALONE

REACTIONS (1)
  - Drug screen false positive [Unknown]

NARRATIVE: CASE EVENT DATE: 20171127
